FAERS Safety Report 8420867-X (Version None)
Quarter: 2012Q2

REPORT INFORMATION
  Report Type: 
  Country: None (occurrence: None)
  Receive Date: 20120531
  Receipt Date: 20120516
  Transmission Date: 20120825
  Serious: Yes (Death, Hospitalization)
  Sender: FDA-Public Use
  Company Number: FK201201424

PATIENT
  Age: 67 Year
  Sex: Male
  Weight: 85 kg

DRUGS (8)
  1. CISPLATIN [Suspect]
     Indication: GASTRIC CANCER
     Dosage: 120 MG, INTRAVENOUS
     Route: 042
     Dates: start: 20111117
  2. CISPLATIN [Suspect]
     Indication: GASTRIC CANCER
     Dosage: 120 MG, INTRAVENOUS
     Route: 042
     Dates: start: 20110922
  3. BEVACIZUMAB (BEVACIZUMAB) [Suspect]
     Indication: GASTRIC CANCER
     Dosage: 655 MG, INTRAVENOUS (NOT OTHERWISE SPECIFIED)
     Route: 042
     Dates: start: 20111117
  4. BEVACIZUMAB (BEVACIZUMAB) [Suspect]
     Indication: GASTRIC CANCER
     Dosage: 655 MG, INTRAVENOUS (NOT OTHERWISE SPECIFIED)
     Route: 042
     Dates: start: 20110922
  5. EPIRUBICIN HYDROCHLORIDE [Suspect]
     Indication: GASTRIC CANCER
     Dosage: 50 MG, INTRAVENOUS (NOT OTHERWISE SPECIFIED)
     Route: 042
     Dates: start: 20111117
  6. EPIRUBICIN HYDROCHLORIDE [Suspect]
     Indication: GASTRIC CANCER
     Dosage: 50 MG, INTRAVENOUS (NOT OTHERWISE SPECIFIED)
     Route: 042
     Dates: start: 20110922
  7. CAPECITABINE [Suspect]
     Indication: GASTRIC CANCER
     Dosage: 5250 MG, ORAL
     Route: 048
     Dates: start: 20111208
  8. CAPECITABINE [Suspect]
     Indication: GASTRIC CANCER
     Dosage: 5250 MG, ORAL
     Route: 048
     Dates: start: 20110922

REACTIONS (2)
  - POST PROCEDURAL HAEMORRHAGE [None]
  - GASTROINTESTINAL ANASTOMOTIC LEAK [None]
